FAERS Safety Report 5382966-9 (Version None)
Quarter: 2007Q3

REPORT INFORMATION
  Report Type: 
  Country: None (occurrence: None)
  Receive Date: 20070710
  Receipt Date: 20070704
  Transmission Date: 20080115
  Serious: Yes (Hospitalization)
  Sender: FDA-Public Use
  Company Number: A0662272A

PATIENT
  Age: 84 Year
  Sex: Male

DRUGS (5)
  1. AVANDIA [Suspect]
     Route: 048
  2. DIABETA [Concomitant]
  3. ALTACE [Concomitant]
  4. CRESTOR [Concomitant]
  5. ASPIRIN [Concomitant]
     Dosage: 80MG UNKNOWN
     Route: 048

REACTIONS (2)
  - CARDIAC DISORDER [None]
  - DYSPNOEA [None]
